FAERS Safety Report 4511132-1 (Version None)
Quarter: 2004Q4

REPORT INFORMATION
  Report Type: 
  Country: None (occurrence: None)
  Receive Date: 20041012
  Receipt Date: 20040613
  Transmission Date: 20050328
  Serious: No
  Sender: FDA-Public Use
  Company Number: PHEH2004US06531

PATIENT
  Age: 5 Year
  Sex: Male

DRUGS (1)
  1. ELIDEL [Suspect]
     Dosage: TOPICAL
     Route: 061

REACTIONS (1)
  - ABNORMAL BEHAVIOUR [None]
